FAERS Safety Report 9128227 (Version 1)
Quarter: 2013Q1

REPORT INFORMATION
  Report Type: Spontaneous
  Country: GB (occurrence: GB)
  Receive Date: 20130125
  Receipt Date: 20130125
  Transmission Date: 20140127
  Serious: Yes (Hospitalization)
  Sender: FDA-Public Use
  Company Number: GB-UCBSA-075987

PATIENT
  Age: 37 Year
  Sex: 0

DRUGS (5)
  1. CIMZIA [Suspect]
     Indication: RHEUMATOID ARTHRITIS
     Route: 058
     Dates: start: 20121019
  2. OMEPRAZOLE [Concomitant]
     Dosage: DOSE: 20 MG; 1/ 1 DAYS
     Route: 048
     Dates: start: 201208
  3. PREDNISOLONE [Concomitant]
     Indication: RHEUMATOID ARTHRITIS
     Dosage: DOSE: 5 MG; 1/ 1 DAY
     Route: 048
  4. CALCICHEW D3 [Concomitant]
     Indication: OSTEOPOROSIS
     Dosage: DOSE: 2 DF; 1/ 1 DAY
     Route: 048
     Dates: start: 201208
  5. FERROUS SULPHATE [Concomitant]
     Indication: ANAEMIA
     Dosage: DOSE: 200 MG; 2/ 1 DAY
     Route: 048
     Dates: start: 201208

REACTIONS (1)
  - Influenza [Recovering/Resolving]
